FAERS Safety Report 20190633 (Version 1)
Quarter: 2021Q4

REPORT INFORMATION
  Report Type: Spontaneous
  Country: US (occurrence: None)
  Receive Date: 20211216
  Receipt Date: 20211216
  Transmission Date: 20220303
  Serious: No
  Sender: FDA-Public Use
  Company Number: US-MDD US Operations-SUP202110-002037

PATIENT
  Age: 36 Year
  Sex: Female
  Weight: 99.79 kg

DRUGS (4)
  1. TROKENDI XR [Suspect]
     Active Substance: TOPIRAMATE
     Indication: Migraine
     Dates: start: 202109
  2. TROKENDI XR [Suspect]
     Active Substance: TOPIRAMATE
     Indication: Seizure
     Dates: start: 202109
  3. TROKENDI XR [Suspect]
     Active Substance: TOPIRAMATE
     Dates: start: 202109
  4. LISINOPRIL [Concomitant]
     Active Substance: LISINOPRIL
     Indication: Blood pressure abnormal
     Dosage: NOT PRESSURE

REACTIONS (1)
  - Photopsia [Unknown]

NARRATIVE: CASE EVENT DATE: 20210101
